APPROVED DRUG PRODUCT: ETRAVIRINE
Active Ingredient: ETRAVIRINE
Strength: 25MG
Dosage Form/Route: TABLET;ORAL
Application: A214196 | Product #001
Applicant: AMNEAL EU LTD
Approved: Jun 14, 2021 | RLD: No | RS: No | Type: DISCN